FAERS Safety Report 7240318-0 (Version None)
Quarter: 2011Q1

REPORT INFORMATION
  Report Type: 
  Country: None (occurrence: None)
  Receive Date: 20110120
  Receipt Date: 20110120
  Transmission Date: 20110831
  Serious: Yes (Disabling)
  Sender: FDA-Public Use
  Company Number: None

PATIENT
  Age: 60 Year
  Sex: Female
  Weight: 72.5755 kg

DRUGS (3)
  1. GEODON [Suspect]
     Indication: SCHIZOPHRENIA, PARANOID TYPE
  2. FUROSEMIDE [Concomitant]
  3. ABILIFY [Suspect]
     Indication: MENTAL DISORDER

REACTIONS (4)
  - HYPERTENSION [None]
  - WEIGHT INCREASED [None]
  - INTESTINAL DILATATION [None]
  - FAECAL INCONTINENCE [None]
